FAERS Safety Report 21762846 (Version 1)
Quarter: 2022Q4

REPORT INFORMATION
  Report Type: Spontaneous
  Country: US (occurrence: None)
  Receive Date: 20221220
  Receipt Date: 20221220
  Transmission Date: 20230113
  Serious: Yes (Hospitalization)
  Sender: FDA-Public Use
  Company Number: None

PATIENT
  Age: 96 Year
  Sex: Male
  Weight: 66.22 kg

DRUGS (1)
  1. DIGOXIN [Suspect]
     Active Substance: DIGOXIN
     Indication: Atrial fibrillation
     Dosage: ONE TAB EVERY DAY PO
     Route: 048
     Dates: start: 20160101, end: 20220916

REACTIONS (15)
  - Fatigue [None]
  - Oxygen saturation decreased [None]
  - Interstitial lung disease [None]
  - Bradycardia [None]
  - Venous pressure jugular increased [None]
  - Oedema [None]
  - Pleural effusion [None]
  - Brain natriuretic peptide increased [None]
  - Nodal rhythm [None]
  - Hypervolaemia [None]
  - Cardioactive drug level increased [None]
  - Dyspnoea [None]
  - Toxicity to various agents [None]
  - Supraventricular extrasystoles [None]
  - Sinus arrest [None]

NARRATIVE: CASE EVENT DATE: 20220916
